FAERS Safety Report 4852117-5 (Version None)
Quarter: 2005Q4

REPORT INFORMATION
  Report Type: 
  Country: None (occurrence: None)
  Receive Date: 20051209
  Receipt Date: 20051128
  Transmission Date: 20060501
  Serious: Yes (Death, Other)
  Sender: FDA-Public Use
  Company Number: EM2005-0610

PATIENT

DRUGS (3)
  1. PROLEUKIN [Suspect]
     Indication: METASTATIC MALIGNANT MELANOMA
     Dosage: 7.2 MIU/KG, Q8H, INTRAVENOUS
     Route: 042
  2. CYCLOPHOSPHAMIDE [Concomitant]
  3. FLUDARABINE PHOSPHATE [Concomitant]

REACTIONS (3)
  - EPSTEIN-BARR VIRUS INFECTION [None]
  - LYMPHOMA [None]
  - LYMPHOPROLIFERATIVE DISORDER [None]
